FAERS Safety Report 4582230-1 (Version None)
Quarter: 2005Q1

REPORT INFORMATION
  Report Type: 
  Country: None (occurrence: None)
  Receive Date: 20050214
  Receipt Date: 20050201
  Transmission Date: 20050727
  Serious: Yes (Hospitalization)
  Sender: FDA-Public Use
  Company Number: GXKR2005FR00536

PATIENT
  Age: 82 Year
  Sex: Female

DRUGS (7)
  1. ALLOPURINOL [Suspect]
     Indication: HYPERURICAEMIA
  2. ACEBUTOLOL [Concomitant]
  3. CLOBAZAM (CLOBAZAM) [Concomitant]
  4. CLOMIPRAMINE HCL [Concomitant]
  5. BEZAFIBRATE (BEZAFIBRATE) [Concomitant]
  6. METHYCLOTHIAZIDE (METHYCLOTHIAZIDE) [Concomitant]
  7. TRIAMTERENE (TRIAMTERENE) [Concomitant]

REACTIONS (3)
  - BLOOD CREATININE INCREASED [None]
  - DYSPEPSIA [None]
  - MENINGITIS ASEPTIC [None]
